FAERS Safety Report 18665597 (Version 1)
Quarter: 2020Q4

REPORT INFORMATION
  Report Type: Spontaneous
  Country: CA (occurrence: CA)
  Receive Date: 20201226
  Receipt Date: 20201226
  Transmission Date: 20210114
  Serious: Yes (Other)
  Sender: FDA-Public Use
  Company Number: CA-CELLTRION INC.-2020CA025018

PATIENT

DRUGS (6)
  1. INFLECTRA [Suspect]
     Active Substance: INFLIXIMAB-DYYB
     Dosage: 10 MG/KG (AT WEEK 0, 2, 6, THEN EVERY 8 WEEKS)
     Route: 042
     Dates: start: 20200831
  2. PREDNISONE. [Concomitant]
     Active Substance: PREDNISONE
     Dosage: 30 MG, DAILY (OD TAPERING STARTED ON 40 MG)
     Route: 065
     Dates: start: 20200706
  3. INFLECTRA [Suspect]
     Active Substance: INFLIXIMAB-DYYB
     Dosage: 10 MG/KG (AT WEEK 0, 2, 6, THEN EVERY 8 WEEKS)
     Route: 042
     Dates: start: 20200804
  4. INFLECTRA [Suspect]
     Active Substance: INFLIXIMAB-DYYB
     Dosage: 10 MG/KG (AT WEEK 0, 2, 6, THEN EVERY 8 WEEKS)
     Route: 042
     Dates: start: 20201217
  5. INFLECTRA [Suspect]
     Active Substance: INFLIXIMAB-DYYB
     Dosage: 10 MG/KG (AT WEEK 0, 2, 6, THEN EVERY 8 WEEKS)
     Route: 042
     Dates: start: 20200804
  6. INFLECTRA [Suspect]
     Active Substance: INFLIXIMAB-DYYB
     Indication: COLITIS ULCERATIVE
     Dosage: 10 MG/KG (AT WEEK 0, 2, 6, THEN EVERY 8 WEEKS)
     Route: 042
     Dates: start: 20200720

REACTIONS (8)
  - Nausea [Recovered/Resolved]
  - Weight increased [Unknown]
  - Discomfort [Recovered/Resolved]
  - Disease recurrence [Recovered/Resolved]
  - Headache [Unknown]
  - Fatigue [Unknown]
  - Feeling hot [Recovered/Resolved]
  - Blood pressure diastolic decreased [Unknown]

NARRATIVE: CASE EVENT DATE: 20200804
